FAERS Safety Report 4534953-8 (Version None)
Quarter: 2004Q4

REPORT INFORMATION
  Report Type: 
  Country: None (occurrence: None)
  Receive Date: 20041222
  Receipt Date: 20040913
  Transmission Date: 20050328
  Serious: No
  Sender: FDA-Public Use
  Company Number: US-BRISTOL-MYERS SQUIBB COMPANY-12700159

PATIENT
  Age: 79 Year
  Sex: Male
  Weight: 79 kg

DRUGS (5)
  1. PRAVACHOL [Suspect]
     Route: 048
     Dates: start: 20020910
  2. COUMADIN [Concomitant]
  3. POTASSIUM [Concomitant]
  4. CARDIZEM [Concomitant]
  5. LASIX [Concomitant]

REACTIONS (1)
  - VISUAL ACUITY REDUCED [None]
